FAERS Safety Report 14013700 (Version 20)
Quarter: 2019Q1

REPORT INFORMATION
  Report Type: Report from Study
  Country: CA (occurrence: CA)
  Receive Date: 20170926
  Receipt Date: 20190116
  Transmission Date: 20190417
  Serious: Yes (Hospitalization, Other)
  Sender: FDA-Public Use
  Company Number: CA-TAKEDA-2017TUS016504

PATIENT
  Age: 79 Year
  Sex: Male

DRUGS (19)
  1. VEDOLIZUMAB [Suspect]
     Active Substance: VEDOLIZUMAB
     Indication: COLITIS ULCERATIVE
     Dosage: 300 MG, UNK
     Route: 042
     Dates: start: 20170713
  2. VEDOLIZUMAB [Suspect]
     Active Substance: VEDOLIZUMAB
     Dosage: 300 MG, Q4WEEKS
     Route: 042
     Dates: start: 20170919
  3. DIPHENHYDRAMINE. [Concomitant]
     Active Substance: DIPHENHYDRAMINE
     Indication: PREMEDICATION
     Dosage: 25 MG, UNK
     Route: 042
  4. ROBAXACET [Concomitant]
     Active Substance: ACETAMINOPHEN\METHOCARBAMOL
     Dosage: UNK
  5. VEDOLIZUMAB [Suspect]
     Active Substance: VEDOLIZUMAB
     Dosage: 300 MG, UNK
     Route: 042
     Dates: start: 20180730
  6. VEDOLIZUMAB [Suspect]
     Active Substance: VEDOLIZUMAB
     Dosage: 300 MG, UNK
     Route: 042
  7. BETNESOL                           /00008502/ [Concomitant]
     Active Substance: BETAMETHASONE SODIUM PHOSPHATE
     Dosage: UNK
  8. VEDOLIZUMAB [Suspect]
     Active Substance: VEDOLIZUMAB
     Dosage: 300 MG, UNK
     Route: 042
  9. SOLU-CORTEF [Concomitant]
     Active Substance: HYDROCORTISONE SODIUM SUCCINATE
     Indication: PREMEDICATION
     Dosage: 100 MG, UNK
     Route: 042
  10. VEDOLIZUMAB [Suspect]
     Active Substance: VEDOLIZUMAB
     Dosage: 300 MG, UNK
     Route: 042
  11. PANTOLOC [Suspect]
     Active Substance: PANTOPRAZOLE SODIUM
     Indication: PRODUCT USED FOR UNKNOWN INDICATION
     Dosage: UNK
     Route: 048
  12. PLAVIX [Concomitant]
     Active Substance: CLOPIDOGREL BISULFATE
     Dosage: UNK
  13. MELOXICAM. [Concomitant]
     Active Substance: MELOXICAM
     Dosage: UNK
  14. SALOFALK                           /00000301/ [Concomitant]
     Active Substance: MESALAMINE
     Dosage: UNK
     Dates: end: 20180318
  15. PREDNISONE. [Concomitant]
     Active Substance: PREDNISONE
     Dosage: UNK
     Dates: start: 20170417
  16. CRESTOR [Concomitant]
     Active Substance: ROSUVASTATIN CALCIUM
     Dosage: UNK
  17. VEDOLIZUMAB [Suspect]
     Active Substance: VEDOLIZUMAB
     Dosage: 300 MG, UNK
     Route: 042
  18. VEDOLIZUMAB [Suspect]
     Active Substance: VEDOLIZUMAB
     Dosage: 300 MG, UNK
     Route: 042
     Dates: end: 20181204
  19. ATIVAN [Concomitant]
     Active Substance: LORAZEPAM
     Dosage: 1 MG, UNK

REACTIONS (25)
  - Compression fracture [Unknown]
  - Colitis ulcerative [Not Recovered/Not Resolved]
  - Decreased appetite [Unknown]
  - Aortic aneurysm [Unknown]
  - Back injury [Unknown]
  - Arthritis [Unknown]
  - Pain in extremity [Unknown]
  - Rash [Not Recovered/Not Resolved]
  - Restless legs syndrome [Unknown]
  - Heart rate increased [Unknown]
  - Arthralgia [Unknown]
  - Pain [Not Recovered/Not Resolved]
  - Infusion related reaction [Recovered/Resolved]
  - Haemoglobin decreased [Unknown]
  - Insomnia [Unknown]
  - Pruritus [Unknown]
  - Abdominal pain lower [Unknown]
  - Colectomy [Not Recovered/Not Resolved]
  - Sciatica [Unknown]
  - Blood pressure increased [Not Recovered/Not Resolved]
  - Asthenia [Unknown]
  - Back pain [Unknown]
  - Cough [Unknown]
  - Drug ineffective [Unknown]
  - Off label use [Unknown]

NARRATIVE: CASE EVENT DATE: 2017
